FAERS Safety Report 23491207 (Version 2)
Quarter: 2025Q1

REPORT INFORMATION
  Report Type: Spontaneous
  Country: US (occurrence: US)
  Receive Date: 20240207
  Receipt Date: 20250327
  Transmission Date: 20250409
  Serious: Yes (Other)
  Sender: AMGEN
  Company Number: US-AMGEN-USASP2024022643

PATIENT

DRUGS (1)
  1. AIMOVIG [Suspect]
     Active Substance: ERENUMAB-AOOE
     Indication: Product used for unknown indication
     Route: 065

REACTIONS (35)
  - Corneal abrasion [Unknown]
  - Atrial fibrillation [Unknown]
  - Nausea [Unknown]
  - Vomiting [Unknown]
  - Retching [Unknown]
  - Weight decreased [Unknown]
  - Decreased appetite [Unknown]
  - Ventricular extrasystoles [Unknown]
  - Hypotension [Unknown]
  - Dizziness [Unknown]
  - Palpitations [Unknown]
  - Heart rate increased [Unknown]
  - Feeling hot [Unknown]
  - Peripheral coldness [Unknown]
  - Pyrexia [Unknown]
  - Chills [Unknown]
  - Constipation [Unknown]
  - Insomnia [Unknown]
  - Dyspnoea [Unknown]
  - Fatigue [Unknown]
  - Arthralgia [Unknown]
  - Pain in extremity [Unknown]
  - Pain [Unknown]
  - Gait disturbance [Unknown]
  - Chest pain [Unknown]
  - Urinary tract infection [Unknown]
  - Tooth fracture [Unknown]
  - Pruritus [Unknown]
  - Dysphagia [Unknown]
  - Alopecia [Unknown]
  - Tinnitus [Unknown]
  - Anxiety [Unknown]
  - Brain fog [Unknown]
  - Dry eye [Unknown]
  - Abnormal dreams [Unknown]
